FAERS Safety Report 9046379 (Version 1)
Quarter: 2013Q1

REPORT INFORMATION
  Report Type: Spontaneous
  Country: US (occurrence: None)
  Receive Date: 20130128
  Receipt Date: 20130128
  Transmission Date: 20140127
  Serious: Yes (Hospitalization)
  Sender: FDA-Public Use
  Company Number: None

PATIENT
  Age: 60 Year
  Sex: Female

DRUGS (3)
  1. PEG-INTRON [Suspect]
     Indication: HEPATITIS C VIRUS TEST POSITIVE
     Route: 058
  2. RIBAVIRIN [Suspect]
     Dosage: 1000 MG   DAILY -BID DOSING-  PO?1.5 WEEKS
     Route: 048
  3. INCIVEK [Concomitant]

REACTIONS (1)
  - Hypersensitivity [None]
